FAERS Safety Report 8132740-5 (Version None)
Quarter: 2012Q1

REPORT INFORMATION
  Report Type: 
  Country: None (occurrence: None)
  Receive Date: 20120213
  Receipt Date: 20120206
  Transmission Date: 20120608
  Serious: Yes (Other)
  Sender: FDA-Public Use
  Company Number: GB-JNJFOC-20120203784

PATIENT
  Age: 48 Year
  Sex: Female

DRUGS (5)
  1. DARUNAVIR ETHANOLATE [Suspect]
     Indication: HIV INFECTION
     Route: 065
  2. RITONAVIR [Suspect]
     Indication: HIV INFECTION
     Route: 065
  3. TRUVADA [Suspect]
     Indication: HIV INFECTION
     Route: 065
  4. PREDNISOLONE [Concomitant]
     Route: 065
  5. DIPYRIDAMOLE [Concomitant]
     Route: 065

REACTIONS (4)
  - TROPONIN I INCREASED [None]
  - ISCHAEMIA [None]
  - CHEST PAIN [None]
  - CEREBRAL INFARCTION [None]
